FAERS Safety Report 11576467 (Version 8)
Quarter: 2025Q4

REPORT INFORMATION
  Report Type: Report from Study
  Country: EU (occurrence: EU)
  Receive Date: 20150930
  Receipt Date: 20251021
  Transmission Date: 20260118
  Serious: Yes (Hospitalization)
  Sender: BOEHRINGER INGELHEIM
  Company Number: EU-BOEHRINGER INGELHEIM GMBH, GERMANY-2015-BI-52502DE

PATIENT
  Age: 74 Year
  Sex: Male
  Weight: 76 kg

DRUGS (6)
  1. NINTEDANIB [Suspect]
     Active Substance: NINTEDANIB
     Indication: Lung adenocarcinoma
     Route: 048
     Dates: start: 20150826, end: 20150919
  2. NINTEDANIB [Suspect]
     Active Substance: NINTEDANIB
     Route: 048
  3. NINTEDANIB [Suspect]
     Active Substance: NINTEDANIB
     Route: 048
  4. DOCETAXEL [Suspect]
     Active Substance: DOCETAXEL
     Indication: Lung adenocarcinoma
     Dosage: FORMULATION: LIQUID; DOSE PER APP/DAILY DOSE: 75MG/M2 BODY SURFACE AREA
     Route: 042
  5. BISOPROLOL [Concomitant]
     Active Substance: BISOPROLOL
     Indication: Product used for unknown indication
     Route: 048
  6. INNOHEP 14000 [Concomitant]
     Indication: Product used for unknown indication
     Dosage: STRENGTH: 14000
     Route: 058

REACTIONS (2)
  - Sudden hearing loss [Not Recovered/Not Resolved]
  - Wound infection [Not Recovered/Not Resolved]

NARRATIVE: CASE EVENT DATE: 20150921
